FAERS Safety Report 16632303 (Version 1)
Quarter: 2019Q3

REPORT INFORMATION
  Report Type: Spontaneous
  Country: US (occurrence: US)
  Receive Date: 20190725
  Receipt Date: 20190725
  Transmission Date: 20191004
  Serious: No
  Sender: FDA-Public Use
  Company Number: US-ABBVIE-19S-163-2613724-00

PATIENT
  Age: 47 Year
  Sex: Female
  Weight: 39.04 kg

DRUGS (3)
  1. SYNTHROID [Suspect]
     Active Substance: LEVOTHYROXINE SODIUM
     Dosage: 1/2 CP OF SYNTHROID 50MG
     Route: 048
     Dates: start: 20180806
  2. SYNTHROID [Suspect]
     Active Substance: LEVOTHYROXINE SODIUM
     Indication: AUTOIMMUNE THYROIDITIS
     Dosage: ONE AND ONE HALF 75MCG TABLETS DAILY
     Route: 048
  3. TIROSINT [Suspect]
     Active Substance: LEVOTHYROXINE SODIUM
     Indication: AUTOIMMUNE THYROIDITIS
     Route: 048
     Dates: start: 20180804, end: 20180805

REACTIONS (15)
  - Hypoaesthesia [Unknown]
  - Palpitations [Recovering/Resolving]
  - Insomnia [Unknown]
  - Photopsia [Recovering/Resolving]
  - Panic attack [Recovering/Resolving]
  - Dyspnoea [Recovering/Resolving]
  - Speech disorder [Recovering/Resolving]
  - Hyperhidrosis [Recovering/Resolving]
  - Blepharospasm [Unknown]
  - Sensory loss [Recovering/Resolving]
  - Feeling abnormal [Recovering/Resolving]
  - Hypothyroidism [Recovering/Resolving]
  - Anxiety [Recovering/Resolving]
  - Dizziness [Recovering/Resolving]
  - Autoscopy [Recovering/Resolving]

NARRATIVE: CASE EVENT DATE: 20180804
